FAERS Safety Report 10664053 (Version 2)
Quarter: 2014Q4

REPORT INFORMATION
  Report Type: Spontaneous
  Country: US (occurrence: US)
  Receive Date: 20141219
  Receipt Date: 20141219
  Transmission Date: 20150529
  Serious: No
  Sender: FDA-Public Use
  Company Number: US-MYLANLABS-2013S1025420

PATIENT
  Age: 58 Year
  Sex: Female

DRUGS (3)
  1. SOTRADECOL [Suspect]
     Active Substance: SODIUM TETRADECYL SULFATE
     Indication: VARICOSE VEIN
  2. SOTRADECOL [Suspect]
     Active Substance: SODIUM TETRADECYL SULFATE
     Dosage: 1 %,ONCE
     Route: 042
     Dates: start: 20130926, end: 20130926
  3. SOTRADECOL [Suspect]
     Active Substance: SODIUM TETRADECYL SULFATE
     Indication: SCLEROTHERAPY

REACTIONS (7)
  - Pain [Recovered/Resolved]
  - Swelling [Recovered/Resolved]
  - Vasculitis [Recovered/Resolved]
  - Fear [Recovered/Resolved]
  - Joint swelling [Recovered/Resolved]
  - Burning sensation [Recovered/Resolved]
  - Hypersensitivity [Recovered/Resolved]

NARRATIVE: CASE EVENT DATE: 20130927
